FAERS Safety Report 7928314-9 (Version None)
Quarter: 2011Q4

REPORT INFORMATION
  Report Type: 
  Country: None (occurrence: None)
  Receive Date: 20111118
  Receipt Date: 20111115
  Transmission Date: 20120403
  Serious: Yes (Death, Hospitalization, Other)
  Sender: FDA-Public Use
  Company Number: IL-ABBOTT-11P-135-0838628-00

PATIENT
  Sex: Male
  Weight: 73 kg

DRUGS (14)
  1. COMBIVIR [Concomitant]
     Indication: HIV INFECTION
     Dates: start: 20101201
  2. KALETRA [Suspect]
     Indication: HIV INFECTION
     Route: 048
     Dates: start: 20101201, end: 20111029
  3. VIREAD [Concomitant]
     Indication: HIV INFECTION
     Dates: start: 20101201
  4. RAMIPRIL [Concomitant]
     Indication: HYPERTENSION
     Dates: start: 20100322
  5. RETROVIR [Concomitant]
     Indication: PRODUCT USED FOR UNKNOWN INDICATION
  6. ISENTRESS [Concomitant]
     Indication: HIV INFECTION
     Dates: start: 20101201
  7. LIPITOR [Concomitant]
     Indication: HYPERLIPIDAEMIA
     Dates: start: 20100308
  8. INTELENCE [Concomitant]
     Indication: PRODUCT USED FOR UNKNOWN INDICATION
  9. AZENIL [Concomitant]
     Indication: PRODUCT USED FOR UNKNOWN INDICATION
  10. EPIVIR [Concomitant]
     Indication: PRODUCT USED FOR UNKNOWN INDICATION
  11. FOLIC ACID [Concomitant]
     Indication: PRODUCT USED FOR UNKNOWN INDICATION
  12. MICROPIRIN [Concomitant]
     Indication: DIABETES MELLITUS
     Dates: start: 20050317
  13. NOVOLOG [Concomitant]
     Indication: DIABETES MELLITUS
     Dates: start: 20100827
  14. PRILOSEC [Concomitant]
     Indication: PRODUCT USED FOR UNKNOWN INDICATION
     Dosage: PEG OR PEZ

REACTIONS (18)
  - BRADYCARDIA [None]
  - PANCYTOPENIA [None]
  - HYPONATRAEMIA [None]
  - ATRIOVENTRICULAR BLOCK SECOND DEGREE [None]
  - LUNG INFILTRATION [None]
  - HEPATIC CIRRHOSIS [None]
  - INTERNATIONAL NORMALISED RATIO INCREASED [None]
  - ACQUIRED IMMUNODEFICIENCY SYNDROME [None]
  - ASCITES [None]
  - VENTRICULAR TACHYCARDIA [None]
  - PLASMABLASTIC LYMPHOMA [None]
  - ATRIOVENTRICULAR DISSOCIATION [None]
  - HYPOTHYROIDISM [None]
  - RIGHT VENTRICULAR FAILURE [None]
  - ABDOMINAL DISTENSION [None]
  - PAIN [None]
  - HYPOALBUMINAEMIA [None]
  - INGUINAL HERNIA [None]
